FAERS Safety Report 17335775 (Version 2)
Quarter: 2020Q1

REPORT INFORMATION
  Report Type: Report from Study
  Country: None (occurrence: ES)
  Receive Date: 20200128
  Receipt Date: 20200302
  Transmission Date: 20200409
  Serious: Yes (Death, Hospitalization)
  Sender: FDA-Public Use
  Company Number: ES-ABBVIE-20K-144-3247959-00

PATIENT
  Age: 64 Year
  Sex: Male
  Weight: 94 kg

DRUGS (1)
  1. DUODOPA [Suspect]
     Active Substance: CARBIDOPA\LEVODOPA
     Indication: PARKINSON^S DISEASE
     Route: 050
     Dates: start: 20170209

REACTIONS (6)
  - Metastatic neoplasm [Fatal]
  - Pneumonia [Recovering/Resolving]
  - Vomiting [Recovered/Resolved]
  - Aspiration [Unknown]
  - Constipation [Recovering/Resolving]
  - Procedural complication [Unknown]

NARRATIVE: CASE EVENT DATE: 20200113
